FAERS Safety Report 8781032 (Version 2)
Quarter: 2013Q4

REPORT INFORMATION
  Report Type: Report from Study
  Country: US (occurrence: US)
  Receive Date: 20120913
  Receipt Date: 20131105
  Transmission Date: 20140711
  Serious: Yes (Other)
  Sender: FDA-Public Use
  Company Number: US-009507513-1208USA006667

PATIENT
  Sex: Male

DRUGS (11)
  1. VICTRELIS [Suspect]
     Indication: HEPATITIS C
     Dosage: 4 TABLETS TID
     Route: 048
     Dates: start: 20111006, end: 20120316
  2. PEGINTERFERON ALFA-2A [Suspect]
     Indication: HEPATITIS C
     Dosage: 180 MICROGRAM, QW
     Route: 058
     Dates: start: 20111006, end: 20120316
  3. RIBASPHERE [Suspect]
     Indication: HEPATITIS C
     Dosage: 1200 MG, QD, DIVIDED DOSES
     Dates: start: 20111006, end: 20120316
  4. CARTIA (ASPIRIN) [Concomitant]
  5. PERCOCET [Concomitant]
  6. CITALOPRAM [Concomitant]
  7. SPIRIVA [Concomitant]
  8. SYMBICORT [Concomitant]
  9. LIPITOR [Concomitant]
  10. LIPITOR [Concomitant]
  11. HYDROCHLOROTHIAZIDE [Concomitant]

REACTIONS (5)
  - Cataract operation [Unknown]
  - Blindness [Unknown]
  - Vision blurred [Unknown]
  - Weight decreased [Unknown]
  - Fatigue [Unknown]
